FAERS Safety Report 8322853-7 (Version None)
Quarter: 2012Q2

REPORT INFORMATION
  Report Type: 
  Country: None (occurrence: None)
  Receive Date: 20120430
  Receipt Date: 20120418
  Transmission Date: 20120825
  Serious: Yes (Death)
  Sender: FDA-Public Use
  Company Number: JP-ROCHE-1052296

PATIENT
  Age: 95 Year
  Sex: Female

DRUGS (11)
  1. EDARAVONE [Suspect]
     Indication: EMBOLIC STROKE
     Route: 041
     Dates: start: 20111219, end: 20111219
  2. SELBEX [Concomitant]
     Route: 048
  3. NIKORAN [Concomitant]
     Route: 048
  4. FAMOTIDINE [Concomitant]
     Route: 048
  5. D-ALFA [Concomitant]
     Route: 048
  6. ALTEPLASE [Suspect]
     Indication: EMBOLIC STROKE
     Route: 042
     Dates: start: 20111219, end: 20111219
  7. IFENPRODIL TARTRATE [Concomitant]
     Route: 048
  8. ADETPHOS KOWA [Concomitant]
     Route: 048
  9. DEPAS [Concomitant]
     Route: 048
  10. ISOSORBIDE MONONITRATE [Concomitant]
     Route: 048
  11. PURSENNID [Concomitant]
     Route: 048

REACTIONS (2)
  - BLOOD CREATININE INCREASED [None]
  - MYOCARDIAL INFARCTION [None]
